FAERS Safety Report 22006945 (Version 1)
Quarter: 2023Q1

REPORT INFORMATION
  Report Type: Spontaneous
  Country: US (occurrence: US)
  Receive Date: 20230217
  Receipt Date: 20230217
  Transmission Date: 20230418
  Serious: No
  Sender: FDA-Public Use
  Company Number: US-ELI_LILLY_AND_COMPANY-US202302004434

PATIENT
  Sex: Male

DRUGS (10)
  1. TALTZ [Suspect]
     Active Substance: IXEKIZUMAB
     Indication: Psoriatic arthropathy
     Dosage: 80 MG, UNKNOWN
     Route: 065
  2. TALTZ [Suspect]
     Active Substance: IXEKIZUMAB
     Indication: Psoriatic arthropathy
     Dosage: 80 MG, UNKNOWN
     Route: 065
  3. TALTZ [Suspect]
     Active Substance: IXEKIZUMAB
     Indication: Intervertebral disc degeneration
     Dosage: 80 MG, UNKNOWN
     Route: 065
  4. TALTZ [Suspect]
     Active Substance: IXEKIZUMAB
     Indication: Intervertebral disc degeneration
     Dosage: 80 MG, UNKNOWN
     Route: 065
  5. TALTZ [Suspect]
     Active Substance: IXEKIZUMAB
     Indication: Intervertebral disc degeneration
  6. TALTZ [Suspect]
     Active Substance: IXEKIZUMAB
     Indication: Intervertebral disc degeneration
  7. TALTZ [Suspect]
     Active Substance: IXEKIZUMAB
     Indication: Spinal pain
  8. TALTZ [Suspect]
     Active Substance: IXEKIZUMAB
     Indication: Spinal pain
  9. TALTZ [Suspect]
     Active Substance: IXEKIZUMAB
     Indication: Osteoarthritis
  10. TALTZ [Suspect]
     Active Substance: IXEKIZUMAB
     Indication: Osteoarthritis

REACTIONS (1)
  - Psoriatic arthropathy [Unknown]
